FAERS Safety Report 5921522-8 (Version None)
Quarter: 2008Q4

REPORT INFORMATION
  Report Type: 
  Country: None (occurrence: None)
  Receive Date: 20081017
  Receipt Date: 20081007
  Transmission Date: 20090506
  Serious: Yes (Hospitalization)
  Sender: FDA-Public Use
  Company Number: US-JNJFOC-20081002193

PATIENT
  Sex: Female
  Weight: 83.46 kg

DRUGS (7)
  1. DURAGESIC-100 [Suspect]
     Indication: HEADACHE
     Dosage: 100UG + 50UG EACH EVERY 72 HOURS
     Route: 062
  2. HYDROCODONE/APAP [Concomitant]
     Indication: BREAKTHROUGH PAIN
     Dosage: 2-3 TIMES A DAY AS NEEDED
     Route: 048
  3. SYNTHROID [Concomitant]
     Indication: HYPOTHYROIDISM
     Route: 048
  4. CYTOMEL [Concomitant]
     Indication: HYPOTHYROIDISM
     Route: 048
  5. MULTI-VITAMIN [Concomitant]
  6. VITAMIN AND MINERAL PRENATAL SUPPLEMENT W/ FOLIC ACID CAP [Concomitant]
  7. FOLIC ACID [Concomitant]
     Route: 065

REACTIONS (10)
  - ARNOLD-CHIARI MALFORMATION [None]
  - CONDITION AGGRAVATED [None]
  - DEVICE FAILURE [None]
  - DRUG ADMINISTRATION ERROR [None]
  - DRUG EXPOSURE DURING PREGNANCY [None]
  - HEADACHE [None]
  - INCORRECT DRUG ADMINISTRATION DURATION [None]
  - PAIN [None]
  - WITHDRAWAL SYNDROME [None]
  - WRONG TECHNIQUE IN DRUG USAGE PROCESS [None]
